FAERS Safety Report 9177400 (Version 1)
Quarter: 2013Q1

REPORT INFORMATION
  Report Type: Spontaneous
  Country: GB (occurrence: None)
  Receive Date: 20130319
  Receipt Date: 20130319
  Transmission Date: 20140127
  Serious: Yes (Other)
  Sender: FDA-Public Use
  Company Number: AUR-APL-2013-02167

PATIENT
  Age: 38 Year
  Sex: Female

DRUGS (5)
  1. AMOXICILLIN(AMOXICILLIN) [Suspect]
     Indication: PRODUCT USED FOR UNKNOWN INDICATION
  2. LAMICTAL (LAMOTRIGINE)(25 MG),ORAL [Suspect]
     Indication: EPILEPSY
     Dosage: 200 MG (100 MG,2 IN 1 D),UNKNOWN
     Dates: start: 201211
  3. CLOBAZAM(CLOBAZAM) [Concomitant]
  4. CLOPIDOGREL(CLOPIDOGREL) [Concomitant]
  5. IVABRADINE HYDROCHLORIDE(IVABRADINE HYDROCHLORIDE) [Concomitant]

REACTIONS (6)
  - Arthralgia [None]
  - Lupus-like syndrome [None]
  - Fatigue [None]
  - Increased tendency to bruise [None]
  - Myalgia [None]
  - Drug interaction [None]
